FAERS Safety Report 9482696 (Version 2)
Quarter: 2013Q3

REPORT INFORMATION
  Report Type: Spontaneous
  Country: NL (occurrence: NL)
  Receive Date: 20130828
  Receipt Date: 20130909
  Transmission Date: 20140515
  Serious: Yes (Hospitalization)
  Sender: FDA-Public Use
  Company Number: NL-TEVA-428196ISR

PATIENT
  Age: 14 Year
  Sex: Female
  Weight: 64 kg

DRUGS (4)
  1. METHOTREXAAT [Suspect]
     Indication: OSTEOSARCOMA
     Dosage: 12 GR/M2=20 GR IN 4 HOUR IV
     Route: 042
     Dates: start: 20130814, end: 20130814
  2. MICROGYNON 50 TABLET WRAPPED [Concomitant]
     Dosage: 1 DOSAGE FORMS DAILY;
     Route: 048
     Dates: start: 20130813
  3. ZOFRAN INJVLST 2MG/ML CARTRIDGE 4ML [Concomitant]
     Dosage: 16 ML DAILY; 2 TIMES A DAY 2 PIECES
     Route: 065
     Dates: start: 20130713
  4. DOMPERIDON TABLET 10MG [Concomitant]
     Dosage: 40 MILLIGRAM DAILY;
     Route: 048
     Dates: start: 20130813

REACTIONS (3)
  - Anaphylactic reaction [Recovered/Resolved]
  - Shock [Recovered/Resolved]
  - Renal impairment [Recovered/Resolved]
